FAERS Safety Report 15788850 (Version 6)
Quarter: 2019Q2

REPORT INFORMATION
  Report Type: Report from Study
  Country: CZ (occurrence: CZ)
  Receive Date: 20190104
  Receipt Date: 20190510
  Transmission Date: 20190711
  Serious: Yes (Hospitalization)
  Sender: FDA-Public Use
  Company Number: PHHO2018CZ013663

PATIENT
  Age: 65 Year
  Sex: Female
  Weight: 96 kg

DRUGS (2)
  1. CGP 41251 [Suspect]
     Active Substance: MIDOSTAURIN
     Dosage: 50 MG, BID
     Route: 048
     Dates: start: 20190308
  2. CGP 41251 [Suspect]
     Active Substance: MIDOSTAURIN
     Indication: ACUTE MYELOID LEUKAEMIA
     Dosage: 50 MG, BID
     Route: 048
     Dates: start: 20181201, end: 20181220

REACTIONS (1)
  - Respiratory failure [Recovered/Resolved]

NARRATIVE: CASE EVENT DATE: 20181226
